FAERS Safety Report 9898226 (Version 2)
Quarter: 2014Q1

REPORT INFORMATION
  Report Type: Spontaneous
  Country: US (occurrence: US)
  Receive Date: 20140214
  Receipt Date: 20140214
  Transmission Date: 20141002
  Serious: No
  Sender: FDA-Public Use
  Company Number: US-GILEAD-2011-0041584

PATIENT
  Sex: Female

DRUGS (3)
  1. LETAIRIS [Suspect]
     Indication: PRODUCT USED FOR UNKNOWN INDICATION
     Route: 048
     Dates: start: 20091202
  2. TYVASO [Concomitant]
  3. REVATIO [Concomitant]

REACTIONS (3)
  - Oxygen saturation decreased [Unknown]
  - Wheezing [Unknown]
  - Cough [Unknown]
